FAERS Safety Report 9805524 (Version 1)
Quarter: 2014Q1

REPORT INFORMATION
  Report Type: Spontaneous
  Country: US (occurrence: US)
  Receive Date: 20140109
  Receipt Date: 20140109
  Transmission Date: 20141002
  Serious: Yes (Other)
  Sender: FDA-Public Use
  Company Number: US-ASTELLAS-2014US000108

PATIENT
  Age: 79 Year
  Sex: Male

DRUGS (2)
  1. MYRBETRIQ [Suspect]
     Indication: PRODUCT USED FOR UNKNOWN INDICATION
     Dosage: 25 MG, UNKNOWN/D
     Route: 048
     Dates: start: 20131101, end: 20131227
  2. MYRBETRIQ [Suspect]
     Dosage: 25 MG, UNK
     Route: 048
     Dates: start: 20140102

REACTIONS (5)
  - Blood pressure decreased [Unknown]
  - Parkinson^s disease [Unknown]
  - Confusional state [Unknown]
  - Depression [Unknown]
  - Fatigue [Unknown]
